FAERS Safety Report 6167439-8 (Version None)
Quarter: 2009Q2

REPORT INFORMATION
  Report Type: 
  Country: None (occurrence: None)
  Receive Date: 20090424
  Receipt Date: 20090421
  Transmission Date: 20091009
  Serious: Yes (Death, Hospitalization)
  Sender: FDA-Public Use
  Company Number: PHHY2009CA13993

PATIENT
  Sex: Female

DRUGS (1)
  1. SANDOSTATIN LAR [Suspect]
     Indication: GASTRIC CANCER
     Dosage: 20 MG, QW4
     Route: 030
     Dates: start: 20090318

REACTIONS (2)
  - DEATH [None]
  - PAIN [None]
